FAERS Safety Report 14624701 (Version 1)
Quarter: 2018Q1

REPORT INFORMATION
  Report Type: Spontaneous
  Country: US (occurrence: US)
  Receive Date: 20180311
  Receipt Date: 20180311
  Transmission Date: 20180509
  Serious: Yes (Disabling, Other)
  Sender: FDA-Public Use
  Company Number: None

PATIENT
  Age: 60 Year
  Sex: Female
  Weight: 92.25 kg

DRUGS (8)
  1. B12 INJECTION [Concomitant]
  2. LEVOFLOXACIN. [Suspect]
     Active Substance: LEVOFLOXACIN
     Indication: SINUSITIS
     Dosage: ?          QUANTITY:10 TABLET(S);?
     Route: 048
     Dates: start: 20180118, end: 20180125
  3. WILD SALMON OIL WITH D3 [Concomitant]
  4. MAGNESIUM [Concomitant]
     Active Substance: MAGNESIUM
  5. XANAX [Concomitant]
     Active Substance: ALPRAZOLAM
  6. VITAMIN C [Concomitant]
     Active Substance: ASCORBIC ACID
  7. SYNTHROID [Concomitant]
     Active Substance: LEVOTHYROXINE SODIUM
  8. MULTI VITAMIN [Concomitant]
     Active Substance: VITAMINS

REACTIONS (6)
  - Back pain [None]
  - Sensitivity of teeth [None]
  - Loss of personal independence in daily activities [None]
  - Feeling abnormal [None]
  - Pain in extremity [None]
  - Lacrimation increased [None]

NARRATIVE: CASE EVENT DATE: 20180125
